FAERS Safety Report 10476309 (Version 3)
Quarter: 2015Q1

REPORT INFORMATION
  Report Type: Report from Study
  Country: US (occurrence: US)
  Receive Date: 20140925
  Receipt Date: 20150119
  Transmission Date: 20150720
  Serious: Yes (Death)
  Sender: FDA-Public Use
  Company Number: US-009507513-1407USA002062

PATIENT
  Age: 56 Year
  Sex: Female

DRUGS (4)
  1. PEMBROLIZUMAB. [Suspect]
     Active Substance: PEMBROLIZUMAB
     Indication: METASTATIC MALIGNANT MELANOMA
     Dosage: STENGTH:2 MG/KG/DAY, Q3W, , TOTAL DAILY DOSE 137MG
     Route: 042
     Dates: start: 20140418, end: 20140509
  2. PEMBROLIZUMAB. [Suspect]
     Active Substance: PEMBROLIZUMAB
     Dosage: STENGTH:2 MG/KG/DAY, Q3W, , TOTAL DAILY DOSE 135MG
     Route: 042
     Dates: start: 20140529, end: 20140529
  3. PEMBROLIZUMAB. [Suspect]
     Active Substance: PEMBROLIZUMAB
     Dosage: STENGTH:2 MG/KG/DAY, Q3W, , TOTAL DAILY DOSE 132MG
     Route: 042
     Dates: start: 20140801, end: 20140801
  4. PEMBROLIZUMAB. [Suspect]
     Active Substance: PEMBROLIZUMAB
     Dosage: STENGTH:2 MG/KG/DAY, Q3W, , TOTAL DAILY DOSE 139MG
     Route: 042
     Dates: start: 20140620, end: 20140710

REACTIONS (5)
  - Blood alkaline phosphatase increased [Not Recovered/Not Resolved]
  - Malignant neoplasm progression [Fatal]
  - Oedema peripheral [Not Recovered/Not Resolved]
  - Stomatitis [Recovered/Resolved]
  - Stomatitis [Not Recovered/Not Resolved]

NARRATIVE: CASE EVENT DATE: 20140529
